FAERS Safety Report 9631440 (Version 2)
Quarter: 2013Q4

REPORT INFORMATION
  Report Type: Spontaneous
  Country: JP (occurrence: JP)
  Receive Date: 20131018
  Receipt Date: 20131028
  Transmission Date: 20140711
  Serious: Yes (Hospitalization)
  Sender: FDA-Public Use
  Company Number: US-ASTRAZENECA-2013SE76738

PATIENT
  Age: 83 Year
  Sex: Male

DRUGS (3)
  1. UNISIA [Suspect]
     Indication: HYPERTENSION
     Route: 048
     Dates: start: 20130930, end: 20131003
  2. NEOXY TAPE [Concomitant]
     Indication: HYPERTONIC BLADDER
     Route: 062
  3. TOVIAZ [Concomitant]
     Indication: HYPERTONIC BLADDER
     Route: 048

REACTIONS (1)
  - Nephrotic syndrome [Not Recovered/Not Resolved]
